FAERS Safety Report 7311860-9 (Version None)
Quarter: 2011Q1

REPORT INFORMATION
  Report Type: 
  Country: None (occurrence: None)
  Receive Date: 20110215
  Receipt Date: 20110215
  Transmission Date: 20110831
  Serious: Yes (Death)
  Sender: FDA-Public Use
  Company Number: None

PATIENT
  Age: 84 Year
  Sex: Female
  Weight: 64.4 kg

DRUGS (29)
  1. VIT D [Concomitant]
  2. FERROUS SULATE [Concomitant]
  3. AMIODARONE HCL [Suspect]
     Indication: ATRIAL FIBRILLATION
     Dosage: 200MG QHS PO CHRONIC
     Route: 048
  4. CALCIUM CITRATE [Concomitant]
  5. NORCO [Concomitant]
  6. DULCOLAX [Concomitant]
  7. SYNTHROID [Suspect]
  8. ENALAPRIL [Concomitant]
  9. HYDROXYZINE [Concomitant]
  10. SENOKOT [Concomitant]
  11. NASACORT [Concomitant]
  12. ACETAMINOPHEN [Concomitant]
  13. TOPROL-XL [Concomitant]
  14. SALINE [Concomitant]
  15. FLECAINIDE ACETATE [Concomitant]
  16. FLUCONAZOLE [Suspect]
  17. PROVENTIL [Concomitant]
  18. COUMADIN [Concomitant]
  19. PARADEX [Concomitant]
  20. CALCIUM CITRATE [Concomitant]
  21. OCULAN [Concomitant]
  22. ALBUTEROL [Concomitant]
  23. DOCUSATE [Concomitant]
  24. ZYRTEC [Concomitant]
  25. TOPROL-XL [Concomitant]
  26. ZOFRAN [Concomitant]
  27. DORIPENEM [Concomitant]
  28. ENOXAPARIN [Concomitant]
  29. FUROSEMIDE [Concomitant]

REACTIONS (3)
  - HYPOXIA [None]
  - TOXICITY TO VARIOUS AGENTS [None]
  - CARDIAC FAILURE CONGESTIVE [None]
